FAERS Safety Report 11201399 (Version 1)
Quarter: 2015Q2

REPORT INFORMATION
  Report Type: Spontaneous
  Country: None (occurrence: None)
  Receive Date: 20150617
  Receipt Date: 20150617
  Transmission Date: 20150821
  Serious: Yes (Hospitalization)
  Sender: FDA-Public Use
  Company Number: None

PATIENT
  Age: 88 Year
  Sex: Male
  Weight: 93 kg

DRUGS (9)
  1. POLYETHYLENE GLYCOL 3350. [Concomitant]
     Active Substance: POLYETHYLENE GLYCOL 3350
  2. SIMVASTATIN. [Concomitant]
     Active Substance: SIMVASTATIN
  3. FERROUS SULFATE [Concomitant]
     Active Substance: FERROUS SULFATE\FERROUS SULFATE, DRIED
  4. ASCORBIC ACID. [Concomitant]
     Active Substance: ASCORBIC ACID
  5. RIVAROXABAN 15MG [Suspect]
     Active Substance: RIVAROXABAN
     Route: 048
  6. TERASZOSIN [Concomitant]
  7. FELODIPINEEXTENDED-RELEASE TABLETS [Concomitant]
     Active Substance: FELODIPINE
  8. LEVOTHYROXINE [Concomitant]
     Active Substance: LEVOTHYROXINE
  9. BISOPROLOL-HCTZ [Concomitant]

REACTIONS (1)
  - Haemoglobin decreased [None]

NARRATIVE: CASE EVENT DATE: 20150616
